FAERS Safety Report 14078574 (Version 1)
Quarter: 2017Q4

REPORT INFORMATION
  Report Type: Spontaneous
  Country: US (occurrence: None)
  Receive Date: 20171012
  Receipt Date: 20171012
  Transmission Date: 20180321
  Serious: Yes (Other)
  Sender: FDA-Public Use
  Company Number: None

PATIENT
  Age: 31 Year
  Sex: Female

DRUGS (1)
  1. NEXPLANON [Suspect]
     Active Substance: ETONOGESTREL
     Dates: start: 20170915, end: 20171011

REACTIONS (6)
  - Implant site hypersensitivity [None]
  - Implant site inflammation [None]
  - Implant site erythema [None]
  - Hypoaesthesia [None]
  - Impaired healing [None]
  - Implant site scar [None]

NARRATIVE: CASE EVENT DATE: 20170915
